FAERS Safety Report 9352880 (Version 1)
Quarter: 2013Q2

REPORT INFORMATION
  Report Type: Spontaneous
  Country: SE (occurrence: SE)
  Receive Date: 20130618
  Receipt Date: 20130618
  Transmission Date: 20140414
  Serious: Yes (Death, Other)
  Sender: FDA-Public Use
  Company Number: SE-ACCORD-018151

PATIENT
  Age: 33 Year
  Sex: Male

DRUGS (1)
  1. QUETIAPINE FUMARATE [Suspect]

REACTIONS (2)
  - Overdose [Fatal]
  - Drug level increased [Unknown]
